FAERS Safety Report 20000099 (Version 1)
Quarter: 2021Q4

REPORT INFORMATION
  Report Type: Spontaneous
  Country: US (occurrence: US)
  Receive Date: 20211026
  Receipt Date: 20211026
  Transmission Date: 20220303
  Serious: Yes (Other)
  Sender: FDA-Public Use
  Company Number: US-PFIZER INC-202101374787

PATIENT
  Age: 56 Year
  Sex: Female
  Weight: 58.97 kg

DRUGS (1)
  1. CHANTIX [Suspect]
     Active Substance: VARENICLINE TARTRATE
     Dosage: UNK

REACTIONS (7)
  - Breast cancer [Unknown]
  - Blindness [Unknown]
  - Skin cancer [Unknown]
  - Neoplasm malignant [Unknown]
  - Aneurysm [Unknown]
  - Injury [Unknown]
  - Nightmare [Unknown]

NARRATIVE: CASE EVENT DATE: 20100101
